FAERS Safety Report 7252906-6 (Version None)
Quarter: 2011Q1

REPORT INFORMATION
  Report Type: 
  Country: None (occurrence: None)
  Receive Date: 20110129
  Receipt Date: 20100317
  Transmission Date: 20110831
  Serious: No
  Sender: FDA-Public Use
  Company Number: US-ABBOTT-10P-163-0629637-00

PATIENT
  Sex: Female
  Weight: 47.67 kg

DRUGS (5)
  1. WARFARIN SODIUM [Concomitant]
     Indication: ARTERIAL STENOSIS
  2. HUMIRA [Suspect]
     Indication: PSORIASIS
     Dates: start: 20100107
  3. HUMIRA [Suspect]
     Indication: PSORIATIC ARTHROPATHY
     Dates: start: 20091223, end: 20091223
  4. HUMIRA [Suspect]
     Dates: start: 20091216, end: 20091216
  5. PREMARIN [Concomitant]
     Indication: HORMONE REPLACEMENT THERAPY

REACTIONS (1)
  - DRUG EFFECT DECREASED [None]
